FAERS Safety Report 6511752-9 (Version None)
Quarter: 2009Q4

REPORT INFORMATION
  Report Type: 
  Country: None (occurrence: None)
  Receive Date: 20091222
  Receipt Date: 20090402
  Transmission Date: 20100525
  Serious: No
  Sender: FDA-Public Use
  Company Number: US-ASTRAZENECA-2009UW08377

PATIENT
  Age: 77 Year
  Sex: Female
  Weight: 57.6 kg

DRUGS (7)
  1. CRESTOR [Suspect]
     Dosage: 5 MG EVERY OTHER DAY
     Route: 048
  2. ELAVIL [Concomitant]
  3. LEXAPRO [Concomitant]
  4. SOMA [Concomitant]
  5. MACRODANTIN [Concomitant]
  6. MOBIG [Concomitant]
  7. PROTONICS [Concomitant]

REACTIONS (1)
  - HAIR COLOUR CHANGES [None]
